FAERS Safety Report 8994071 (Version 1)
Quarter: 2013Q1

REPORT INFORMATION
  Report Type: Spontaneous
  Country: US (occurrence: US)
  Receive Date: 20130102
  Receipt Date: 20130102
  Transmission Date: 20140127
  Serious: No
  Sender: FDA-Public Use
  Company Number: US-AMGEN-USASP2012082287

PATIENT
  Age: 59 Year
  Sex: Female

DRUGS (3)
  1. ENBREL [Suspect]
     Indication: ANKYLOSING SPONDYLITIS
     Dosage: 50 MG, WEEKLY
     Dates: start: 20120706
  2. METHOTREXATE [Concomitant]
     Dosage: 2.5 MG, 6 TABS WEEKLY FOR 3 WEEKS
     Dates: start: 201207, end: 201207
  3. LEFLUNOMIDE [Concomitant]
     Dosage: 20 MG, DAILY
     Dates: start: 201209

REACTIONS (5)
  - Mouth ulceration [Recovered/Resolved]
  - Pulmonary oedema [Not Recovered/Not Resolved]
  - Upper respiratory tract infection [Not Recovered/Not Resolved]
  - Lower respiratory tract infection [Not Recovered/Not Resolved]
  - Candida infection [Recovered/Resolved]
